FAERS Safety Report 10108621 (Version 27)
Quarter: 2019Q2

REPORT INFORMATION
  Report Type: Report from Study
  Country: CA (occurrence: CA)
  Receive Date: 20140425
  Receipt Date: 20190521
  Transmission Date: 20190711
  Serious: Yes (Death, Hospitalization, Other)
  Sender: FDA-Public Use
  Company Number: CA-ROCHE-1373870

PATIENT
  Age: 77 Year
  Sex: Female
  Weight: 99.8 kg

DRUGS (23)
  1. ACTEMRA [Suspect]
     Active Substance: TOCILIZUMAB
     Indication: RHEUMATOID ARTHRITIS
     Route: 042
     Dates: start: 20111104, end: 20171002
  2. RITUXAN [Suspect]
     Active Substance: RITUXIMAB
     Indication: RHEUMATOID ARTHRITIS
     Route: 042
     Dates: start: 20070905, end: 20110105
  3. HYDROCHLOROTHIAZIDE. [Concomitant]
     Active Substance: HYDROCHLOROTHIAZIDE
     Route: 065
  4. PREDNISONE. [Concomitant]
     Active Substance: PREDNISONE
  5. ACTEMRA [Suspect]
     Active Substance: TOCILIZUMAB
     Route: 042
     Dates: start: 20170714
  6. RITUXAN [Suspect]
     Active Substance: RITUXIMAB
     Route: 042
  7. MINOCYCLINE [Concomitant]
     Active Substance: MINOCYCLINE\MINOCYCLINE HYDROCHLORIDE
     Dosage: DATE: 26/MAR
     Route: 065
  8. PANTOPRAZOLE [Concomitant]
     Active Substance: PANTOPRAZOLE
  9. PROLIA [Concomitant]
     Active Substance: DENOSUMAB
  10. SPIRIVA [Concomitant]
     Active Substance: TIOTROPIUM BROMIDE MONOHYDRATE
  11. PREDNISONE. [Suspect]
     Active Substance: PREDNISONE
     Route: 065
  12. RAMIPRIL. [Concomitant]
     Active Substance: RAMIPRIL
     Route: 065
  13. SOLU-MEDROL [Concomitant]
     Active Substance: METHYLPREDNISOLONE SODIUM SUCCINATE
     Route: 042
  14. DIPHENHYDRAMINE. [Concomitant]
     Active Substance: DIPHENHYDRAMINE
     Indication: PREMEDICATION
     Route: 048
     Dates: start: 20070905, end: 20110105
  15. SULFATRIM [Concomitant]
     Active Substance: SULFAMETHOXAZOLE\TRIMETHOPRIM
  16. RITUXAN [Suspect]
     Active Substance: RITUXIMAB
     Route: 042
     Dates: end: 20190412
  17. PREDNISONE. [Suspect]
     Active Substance: PREDNISONE
     Indication: INFLAMMATION
     Route: 065
  18. SOLU-CORTEF [Concomitant]
     Active Substance: HYDROCORTISONE SODIUM SUCCINATE
     Indication: PREMEDICATION
     Route: 042
     Dates: start: 20070905, end: 20110105
  19. ROSUVASTATIN. [Concomitant]
     Active Substance: ROSUVASTATIN
  20. ACTEMRA [Suspect]
     Active Substance: TOCILIZUMAB
     Route: 042
  21. ACETAMINOPHEN. [Concomitant]
     Active Substance: ACETAMINOPHEN
     Indication: PREMEDICATION
     Route: 048
     Dates: start: 20070905, end: 20110105
  22. BENADRYL [Concomitant]
     Active Substance: DIPHENHYDRAMINE HYDROCHLORIDE
     Route: 048
  23. TYLENOL [Concomitant]
     Active Substance: ACETAMINOPHEN
     Route: 048

REACTIONS (27)
  - Hypertension [Not Recovered/Not Resolved]
  - Rheumatoid arthritis [Not Recovered/Not Resolved]
  - Fall [Unknown]
  - Volvulus [Unknown]
  - Hernia [Unknown]
  - Arthralgia [Unknown]
  - Nerve injury [Unknown]
  - Peroneal nerve palsy [Unknown]
  - Drug ineffective [Unknown]
  - Pharyngitis streptococcal [Recovered/Resolved]
  - Stress [Unknown]
  - Vertigo [Unknown]
  - Nervous system disorder [Unknown]
  - Infection [Unknown]
  - Peripheral swelling [Not Recovered/Not Resolved]
  - Pneumonia [Unknown]
  - Abdominal pain [Unknown]
  - Weight decreased [Unknown]
  - Gastric infection [Unknown]
  - Pain [Unknown]
  - Blood pressure systolic increased [Unknown]
  - Internal haemorrhage [Unknown]
  - Nasopharyngitis [Recovering/Resolving]
  - Somnolence [Unknown]
  - Musculoskeletal stiffness [Not Recovered/Not Resolved]
  - Cerebrovascular accident [Fatal]
  - Blood pressure systolic abnormal [Unknown]

NARRATIVE: CASE EVENT DATE: 2014
